FAERS Safety Report 19034874 (Version 1)
Quarter: 2021Q1

REPORT INFORMATION
  Report Type: Spontaneous
  Country: US (occurrence: US)
  Receive Date: 20210320
  Receipt Date: 20210320
  Transmission Date: 20210420
  Serious: No
  Sender: FDA-Public Use
  Company Number: US-ORGANON-O2103USA000085

PATIENT
  Sex: Female
  Weight: 55.78 kg

DRUGS (1)
  1. FOSAMAX [Suspect]
     Active Substance: ALENDRONATE SODIUM
     Indication: OSTEOPENIA
     Dosage: 1 TABLET PER DAY
     Route: 048
     Dates: start: 2015

REACTIONS (1)
  - Abdominal pain upper [Recovered/Resolved]
